FAERS Safety Report 9222406 (Version 4)
Quarter: 2013Q3

REPORT INFORMATION
  Report Type: Spontaneous
  Country: JP (occurrence: JP)
  Receive Date: 20130410
  Receipt Date: 20130702
  Transmission Date: 20140515
  Serious: Yes (Hospitalization)
  Sender: FDA-Public Use
  Company Number: JP-ELI_LILLY_AND_COMPANY-JP201304000381

PATIENT
  Age: 82 Year
  Sex: Female
  Weight: 57 kg

DRUGS (9)
  1. CYMBALTA [Suspect]
     Indication: DEPRESSION
     Dosage: 20 MG, QD
     Route: 048
     Dates: start: 20111121, end: 20130325
  2. MEILAX [Suspect]
     Indication: INSOMNIA
     Dosage: 1 MG, QD
     Route: 048
     Dates: start: 20110801, end: 20130325
  3. CELECOX [Suspect]
     Indication: OSTEOARTHRITIS
     Dosage: UNK
     Route: 048
     Dates: end: 20130326
  4. LYRICA [Concomitant]
     Indication: NEURALGIA
     Dosage: 75 MG, BID
     Route: 048
     Dates: start: 20130321, end: 20130325
  5. MICARDIS [Concomitant]
     Indication: HYPERTENSION
     Dosage: 40 MG, QD
     Route: 048
     Dates: start: 20130124, end: 20130325
  6. CADUET [Concomitant]
     Indication: HYPERCHOLESTEROLAEMIA
     Dosage: UNK, QD
     Route: 048
     Dates: start: 20121129, end: 20130325
  7. CADUET [Concomitant]
     Indication: HYPERTENSION
  8. FEBUXOSTAT [Concomitant]
     Indication: HYPERURICAEMIA
     Dosage: 20 MG, QD
     Route: 048
     Dates: start: 20121129
  9. PARIET [Concomitant]
     Indication: GASTROOESOPHAGEAL REFLUX DISEASE
     Dosage: 10 MG, QD
     Route: 048
     Dates: start: 20121112

REACTIONS (6)
  - Urinary tract infection [Recovered/Resolved]
  - Altered state of consciousness [Recovered/Resolved]
  - Sepsis [Recovered/Resolved]
  - Renal failure acute [Recovered/Resolved]
  - Osteoarthritis [Not Recovered/Not Resolved]
  - Decreased appetite [Recovered/Resolved]
